FAERS Safety Report 7770653-9 (Version None)
Quarter: 2011Q3

REPORT INFORMATION
  Report Type: 
  Country: None (occurrence: None)
  Receive Date: 20110922
  Receipt Date: 20110920
  Transmission Date: 20111222
  Serious: Yes (Life-Threatening, Hospitalization, Other)
  Sender: FDA-Public Use
  Company Number: PHHY2011NZ72726

PATIENT
  Sex: Female

DRUGS (11)
  1. QUINAPRIL HCL [Concomitant]
     Indication: HYPERTENSION
     Dosage: 20 MG, MANE
     Route: 048
  2. COLOXYL [Concomitant]
     Indication: CONSTIPATION
     Dosage: 2 DF, UNK
  3. METFORMIN [Concomitant]
     Indication: TYPE 2 DIABETES MELLITUS
     Dosage: 500 MG, TDS
     Route: 048
  4. PANTOPRAZOLE [Concomitant]
     Indication: GASTROOESOPHAGEAL REFLUX DISEASE
     Dosage: 20 MG, BD
     Route: 048
  5. METOPROLOL TARTRATE [Concomitant]
     Dosage: 47.5 MG, MANE AT TIME OF NEUTROPENIA
  6. SENNA [Concomitant]
     Indication: CONSTIPATION
     Dosage: 2 DF, BD
  7. CLOZAPINE [Suspect]
     Indication: SCHIZOPHRENIA
     Dosage: 300 MG,
     Route: 048
     Dates: start: 20110624, end: 20110811
  8. MOVIPREP [Concomitant]
     Indication: CONSTIPATION
     Dosage: 2 DF, AS NEEDED DAILY
  9. SIMVASTATIN [Concomitant]
     Indication: BLOOD CHOLESTEROL INCREASED
     Dosage: 20 MG, NOCTE
     Route: 048
  10. CLONAZEPAM [Concomitant]
     Indication: SCHIZOPHRENIA
     Dosage: 0.25 MG, BD
  11. SPIRONOLACTONE [Concomitant]

REACTIONS (11)
  - NEUTROPENIC SEPSIS [None]
  - ENTEROCOCCAL SEPSIS [None]
  - MENTAL IMPAIRMENT [None]
  - ENTEROCOLITIS HAEMORRHAGIC [None]
  - WHITE BLOOD CELL COUNT DECREASED [None]
  - POOR QUALITY SLEEP [None]
  - AGRANULOCYTOSIS [None]
  - NEUTROPHIL COUNT DECREASED [None]
  - PLATELET COUNT INCREASED [None]
  - GASTROINTESTINAL HAEMORRHAGE [None]
  - PNEUMONIA [None]
